FAERS Safety Report 5258126-9 (Version None)
Quarter: 2007Q1

REPORT INFORMATION
  Report Type: 
  Country: None (occurrence: None)
  Receive Date: 20070307
  Receipt Date: 20070302
  Transmission Date: 20070707
  Serious: Yes (Other)
  Sender: FDA-Public Use
  Company Number: GB-BOEHRINGER INGELHEIM PHARMACEUTICALS, INC.-2007-UK-00758UK

PATIENT
  Age: 76 Year
  Weight: 57 kg

DRUGS (4)
  1. SPIRIVA [Suspect]
     Indication: CHRONIC OBSTRUCTIVE PULMONARY DISEASE
     Dosage: 1DF DAILY
     Route: 055
     Dates: start: 20061012, end: 20061024
  2. AMITRIPTYLINE HCL [Concomitant]
     Dosage: 10MG ONCE DAILY
     Route: 048
     Dates: start: 20050609
  3. SERETIDE [Concomitant]
     Indication: CHRONIC OBSTRUCTIVE PULMONARY DISEASE
     Dosage: 250MCG TWICE DAILY
     Route: 055
     Dates: start: 20050809
  4. VENTOLIN [Concomitant]
     Dosage: AS NECESSARY
     Route: 055
     Dates: start: 20070101

REACTIONS (3)
  - CONDITION AGGRAVATED [None]
  - DEVICE FAILURE [None]
  - GENERAL PHYSICAL HEALTH DETERIORATION [None]
